FAERS Safety Report 25959079 (Version 5)
Quarter: 2025Q4

REPORT INFORMATION
  Report Type: Spontaneous
  Country: EU (occurrence: EU)
  Receive Date: 20251025
  Receipt Date: 20251126
  Transmission Date: 20260118
  Serious: Yes (Disabling, Other)
  Sender: ABBVIE
  Company Number: EU-CHEPLA-2025011931

PATIENT
  Age: 37 Year
  Sex: Female

DRUGS (17)
  1. PREDNISOLONE [Suspect]
     Active Substance: PREDNISOLONE
     Indication: Dermatitis contact
     Route: 065
  2. NERISONE [Suspect]
     Active Substance: DIFLUCORTOLONE VALERATE
     Indication: Dermatitis contact
     Route: 003
  3. BETAMETHASONE [Suspect]
     Active Substance: BETAMETHASONE
     Indication: Eczema
     Dosage: PATIENT ROA: TOPICAL
     Dates: start: 2009, end: 2016
  4. BETAMETHASONE [Suspect]
     Active Substance: BETAMETHASONE
     Indication: Eczema
     Dosage: AGAIN PRESCRIBED?PATIENT ROA: TOPICAL
     Dates: start: 20171120
  5. BETAMETHASONE [Suspect]
     Active Substance: BETAMETHASONE
     Indication: Eczema
     Dosage: RENEWED?PATIENT ROA: TOPICAL
  6. HYDROCORTISONE BUTYRATE [Suspect]
     Active Substance: HYDROCORTISONE BUTYRATE
     Indication: Product used for unknown indication
     Route: 065
  7. PREDNISOLONE SODIUM METAZOATE [Suspect]
     Active Substance: PREDNISOLONE SODIUM METAZOATE
     Indication: Product used for unknown indication
     Route: 065
  8. XYZAL [Concomitant]
     Active Substance: LEVOCETIRIZINE DIHYDROCHLORIDE
     Indication: Antiallergic therapy
     Dosage: STRENGTH: 5 MILLIGRAM
  9. HYDROCORTISONE [Suspect]
     Active Substance: HYDROCORTISONE
     Indication: Product used for unknown indication
     Dosage: 4 DF, QD (DOUBLED TO 4 TABLETS PER DAY)
     Route: 048
     Dates: start: 20171219
  10. HYDROCORTISONE [Suspect]
     Active Substance: HYDROCORTISONE
     Indication: Product used for unknown indication
     Dosage: 2 DF, QD, STRENGTH: 10 MG?LAST ADMIN DATE- 2017
     Route: 048
     Dates: start: 20171120
  11. BETAMETHASONE DIPROPIONATE [Suspect]
     Active Substance: BETAMETHASONE DIPROPIONATE
     Indication: Dermatitis contact
     Dosage: PATIENT ROA: TOPICAL
  12. BETAMETHASONE DIPROPIONATE [Suspect]
     Active Substance: BETAMETHASONE DIPROPIONATE
     Indication: Dermatitis contact
     Route: 003
  13. BETAMETHASONE DIPROPIONATE [Suspect]
     Active Substance: BETAMETHASONE DIPROPIONATE
     Indication: Dermatitis contact
     Route: 065
  14. DIPROSONE [Suspect]
     Active Substance: BETAMETHASONE DIPROPIONATE
     Indication: Dermatitis contact
     Dosage: AGAIN PRESCRIBED
     Route: 003
     Dates: start: 20171120
  15. DIPROSONE [Suspect]
     Active Substance: BETAMETHASONE DIPROPIONATE
     Indication: Dermatitis contact
     Dosage: RENEWED
     Route: 003
  16. DIPROSONE [Suspect]
     Active Substance: BETAMETHASONE DIPROPIONATE
     Indication: Dermatitis contact
     Dosage: UNK
     Route: 003
     Dates: start: 2009, end: 2016
  17. LOCOID [Suspect]
     Active Substance: HYDROCORTISONE BUTYRATE
     Indication: Product used for unknown indication
     Route: 065

REACTIONS (16)
  - Disability [Not Recovered/Not Resolved]
  - Loss of personal independence in daily activities [Unknown]
  - Fatigue [Unknown]
  - Depression [Unknown]
  - Therapeutic product effect decreased [Unknown]
  - Emotional distress [Unknown]
  - Insomnia [Unknown]
  - Condition aggravated [Unknown]
  - Suicidal ideation [Unknown]
  - Skin plaque [Not Recovered/Not Resolved]
  - Dry skin [Not Recovered/Not Resolved]
  - Skin lesion [Not Recovered/Not Resolved]
  - Hyperhidrosis [Not Recovered/Not Resolved]
  - Alopecia [Unknown]
  - Night sweats [Not Recovered/Not Resolved]
  - Product use in unapproved indication [Unknown]
